FAERS Safety Report 9278173 (Version 1)
Quarter: 2013Q2

REPORT INFORMATION
  Report Type: Spontaneous
  Country: DK (occurrence: DK)
  Receive Date: 20130508
  Receipt Date: 20130508
  Transmission Date: 20140414
  Serious: Yes (Other)
  Sender: FDA-Public Use
  Company Number: PHHY2013DK043757

PATIENT
  Sex: 0

DRUGS (4)
  1. ZOLEDRONIC ACID [Suspect]
     Indication: METASTATIC RENAL CELL CARCINOMA
     Dosage: 4 MG, EVERY 6 WEEKS
     Route: 042
  2. SUNITINIB [Suspect]
     Indication: METASTATIC RENAL CELL CARCINOMA
     Dosage: 50 MG, QD, (4 WEEK ON AND OFF SCHEDULE FOR 2 WEEKS)
  3. CALCIUM [Concomitant]
     Dosage: 800 MG, UNK
  4. VIT D [Concomitant]
     Dosage: 38 UG, UNK

REACTIONS (1)
  - Osteonecrosis of jaw [Unknown]
